FAERS Safety Report 5206286-8 (Version None)
Quarter: 2007Q1

REPORT INFORMATION
  Report Type: 
  Country: None (occurrence: None)
  Receive Date: 20070111
  Receipt Date: 20070103
  Transmission Date: 20070707
  Serious: Yes (Death, Life-Threatening, Hospitalization)
  Sender: FDA-Public Use
  Company Number: NL-PFIZER INC-2007001881

PATIENT
  Sex: Male

DRUGS (1)
  1. ARTHROTEC [Suspect]
     Indication: MIGRAINE
     Route: 048

REACTIONS (1)
  - ACUTE MYOCARDIAL INFARCTION [None]
